FAERS Safety Report 14139988 (Version 1)
Quarter: 2017Q4

REPORT INFORMATION
  Report Type: Spontaneous
  Country: US (occurrence: US)
  Receive Date: 20171030
  Receipt Date: 20171030
  Transmission Date: 20180321
  Serious: No
  Sender: FDA-Public Use
  Company Number: US-TEVA-812360ACC

PATIENT
  Sex: Female

DRUGS (1)
  1. ESTRADIOL. [Suspect]
     Active Substance: ESTRADIOL
     Dates: start: 201701

REACTIONS (2)
  - Vulvovaginal burning sensation [Unknown]
  - Product quality issue [Unknown]

NARRATIVE: CASE EVENT DATE: 2017
